FAERS Safety Report 21215765 (Version 1)
Quarter: 2022Q3

REPORT INFORMATION
  Report Type: Spontaneous
  Country: SA (occurrence: SA)
  Receive Date: 20220816
  Receipt Date: 20220816
  Transmission Date: 20221027
  Serious: Yes (Other)
  Sender: FDA-Public Use
  Company Number: SA-MLMSERVICE-20220728-3707345-1

PATIENT
  Age: 12 Year
  Sex: Male

DRUGS (2)
  1. CARBOPLATIN [Suspect]
     Active Substance: CARBOPLATIN
     Indication: Nongerminomatous germ cell tumour of the CNS
  2. ETOPOSIDE [Concomitant]
     Active Substance: ETOPOSIDE
     Indication: Nongerminomatous germ cell tumour of the CNS

REACTIONS (2)
  - Acute kidney injury [Unknown]
  - Off label use [Unknown]
